FAERS Safety Report 4669072-3 (Version None)
Quarter: 2005Q2

REPORT INFORMATION
  Report Type: 
  Country: None (occurrence: None)
  Receive Date: 20050523
  Receipt Date: 20050421
  Transmission Date: 20051028
  Serious: Yes (Other)
  Sender: FDA-Public Use
  Company Number: US-BRISTOL-MYERS SQUIBB COMPANY-12941902

PATIENT
  Age: 77 Year
  Sex: Male
  Weight: 100 kg

DRUGS (3)
  1. METFORMIN HCL [Suspect]
     Indication: DIABETES MELLITUS NON-INSULIN-DEPENDENT
     Route: 048
     Dates: start: 20031112
  2. TRICOR [Concomitant]
  3. ATENOLOL [Concomitant]

REACTIONS (1)
  - PLATELET COUNT DECREASED [None]
